FAERS Safety Report 6807829-0 (Version None)
Quarter: 2010Q2

REPORT INFORMATION
  Report Type: 
  Country: None (occurrence: None)
  Receive Date: 20100629
  Receipt Date: 20090122
  Transmission Date: 20101027
  Serious: Yes (Hospitalization)
  Sender: FDA-Public Use
  Company Number: US-PFIZER INC-2009159645

PATIENT
  Sex: Male
  Weight: 263 kg

DRUGS (7)
  1. BEXTRA [Suspect]
     Indication: PAIN
     Dosage: 20 MG, 1X/DAY
     Route: 048
     Dates: start: 20030507, end: 20040602
  2. CAPTOPRIL [Concomitant]
     Dosage: 75 MG, 2X/DAY
     Route: 048
  3. LOVASTATIN [Concomitant]
     Dosage: 80 MG, 1X/DAY
  4. ACETYLSALICYLIC ACID [Concomitant]
     Dosage: 325 MG, 1X/DAY
  5. GLYBURIDE [Concomitant]
     Dosage: 10 MG, 1X/DAY
  6. METFORMIN [Concomitant]
     Dosage: 1000 MG, 1X/DAY
  7. OMEPRAZOLE [Concomitant]
     Dosage: 20 MG, 1X/DAY

REACTIONS (1)
  - ACUTE MYOCARDIAL INFARCTION [None]
